FAERS Safety Report 25571453 (Version 1)
Quarter: 2025Q3

REPORT INFORMATION
  Report Type: Spontaneous
  Country: EU (occurrence: EU)
  Receive Date: 20250717
  Receipt Date: 20250717
  Transmission Date: 20251020
  Serious: Yes (Hospitalization, Other)
  Sender: BRISTOL-MYERS SQUIBB COMPANY
  Company Number: None

PATIENT
  Age: 75 Year
  Sex: Female
  Weight: 50 kg

DRUGS (2)
  1. NIVOLUMAB [Suspect]
     Active Substance: NIVOLUMAB
     Indication: Superficial spreading melanoma stage IV
     Dosage: NIVOLUMAB 1 MG/KG IV G1 Q21 FOR 4 CYCLES
     Route: 042
     Dates: start: 20250220, end: 20250416
  2. NELVUTAMIG [Suspect]
     Active Substance: NELVUTAMIG
     Indication: Superficial spreading melanoma stage IV
     Dosage: IPILIMUMAB 3 MG/KG IV G1 Q21 FOR 4 CYCLES
     Route: 042
     Dates: start: 20250226, end: 20250416

REACTIONS (2)
  - Hepatitis G [Recovered/Resolved]
  - Hypopituitarism [Recovered/Resolved]

NARRATIVE: CASE EVENT DATE: 20250507
